FAERS Safety Report 6527229-0 (Version None)
Quarter: 2010Q1

REPORT INFORMATION
  Report Type: 
  Country: None (occurrence: None)
  Receive Date: 20100104
  Receipt Date: 20100104
  Transmission Date: 20100710
  Serious: Yes (Death, Life-Threatening, Hospitalization)
  Sender: FDA-Public Use
  Company Number: None

PATIENT
  Age: 64 Year
  Sex: Male
  Weight: 68.0396 kg

DRUGS (6)
  1. AMIODARONE HCL [Suspect]
     Indication: ATRIAL FIBRILLATION
     Dosage: 400 MG FOR 10 DAYS THEN 200 MG BID PO
     Route: 048
     Dates: start: 20090220, end: 20090430
  2. METOPROLOL [Concomitant]
  3. TEKTURNA [Concomitant]
  4. CADUET [Concomitant]
  5. ASPIRIN [Concomitant]
  6. PLAVIX [Concomitant]

REACTIONS (1)
  - ACUTE RESPIRATORY DISTRESS SYNDROME [None]
